FAERS Safety Report 5085627-9 (Version None)
Quarter: 2006Q3

REPORT INFORMATION
  Report Type: 
  Country: None (occurrence: None)
  Receive Date: 20060822
  Receipt Date: 20051116
  Transmission Date: 20061208
  Serious: No
  Sender: FDA-Public Use
  Company Number: US-BRISTOL-MYERS SQUIBB COMPANY-13183496

PATIENT
  Age: 25 Year
  Sex: Female

DRUGS (1)
  1. BLEOMYCIN [Suspect]
     Indication: OVARIAN CANCER
     Dates: start: 20051114, end: 20051114

REACTIONS (2)
  - MEDICATION ERROR [None]
  - OVERDOSE [None]
